FAERS Safety Report 23599883 (Version 1)
Quarter: 2024Q1

REPORT INFORMATION
  Report Type: Other
  Country: US (occurrence: None)
  Receive Date: 20240306
  Receipt Date: 20240306
  Transmission Date: 20240409
  Serious: Yes (Hospitalization, Other)
  Sender: FDA-Public Use
  Company Number: US-ROCHE-3515174

PATIENT
  Age: 59 Year
  Sex: Female
  Weight: 86.896 kg

DRUGS (1)
  1. OCREVUS [Suspect]
     Active Substance: OCRELIZUMAB
     Indication: Relapsing-remitting multiple sclerosis
     Dosage: DATE OF TREATMENT: 14/DEC/2021, 16/FEB/2023, 10/OCT/2023,
     Route: 042

REACTIONS (4)
  - Dysmetria [Unknown]
  - Hepatitis [Unknown]
  - Senile osteoporosis [Unknown]
  - COVID-19 [Recovered/Resolved]
